FAERS Safety Report 6163409-4 (Version None)
Quarter: 2009Q2

REPORT INFORMATION
  Report Type: 
  Country: None (occurrence: None)
  Receive Date: 20090422
  Receipt Date: 20090415
  Transmission Date: 20091009
  Serious: Yes (Other)
  Sender: FDA-Public Use
  Company Number: PHHY2009DE14365

PATIENT
  Age: 62 Year
  Sex: Female

DRUGS (2)
  1. AREDIA [Suspect]
     Dosage: UNK
     Dates: start: 19970601, end: 20051101
  2. ZOLEDRONIC ACID [Suspect]
     Dosage: UNK
     Dates: start: 20051101

REACTIONS (1)
  - OSTEONECROSIS [None]
